FAERS Safety Report 4751530-4 (Version None)
Quarter: 2005Q3

REPORT INFORMATION
  Report Type: 
  Country: None (occurrence: None)
  Receive Date: 20050823
  Receipt Date: 20050823
  Transmission Date: 20060218
  Serious: Yes (Hospitalization)
  Sender: FDA-Public Use
  Company Number: None

PATIENT
  Age: 61 Year
  Sex: Male
  Weight: 114.5 kg

DRUGS (6)
  1. WARFARIN SODIUM [Suspect]
     Indication: ATRIAL FIBRILLATION
     Dosage: 6 MG 4 X 1 WK, 8 MG 3 X 1 WK
     Route: 065
     Dates: start: 19990101, end: 20050624
  2. WARFARIN SODIUM [Suspect]
     Indication: CORONARY ARTERY DISEASE
     Dosage: 6 MG 4 X 1 WK, 8 MG 3 X 1 WK
     Route: 065
     Dates: start: 19990101, end: 20050624
  3. WARFARIN SODIUM [Suspect]
     Indication: KNEE ARTHROPLASTY
     Dosage: 6 MG 4 X 1 WK, 8 MG 3 X 1 WK
     Route: 065
     Dates: start: 19990101, end: 20050624
  4. WARFARIN SODIUM [Suspect]
     Indication: MYOCARDIAL INFARCTION
     Dosage: 6 MG 4 X 1 WK, 8 MG 3 X 1 WK
     Route: 065
     Dates: start: 19990101, end: 20050624
  5. ETODOLAC [Suspect]
     Indication: PAIN
     Dosage: 800 MG QD
     Dates: start: 20041015, end: 20050624
  6. ASPIRIN [Suspect]
     Indication: CORONARY ARTERY DISEASE
     Dosage: 325 MG QD
     Dates: start: 20040709, end: 20050602

REACTIONS (3)
  - DIZZINESS [None]
  - GASTROINTESTINAL HAEMORRHAGE [None]
  - INTERNATIONAL NORMALISED RATIO INCREASED [None]
